FAERS Safety Report 18471380 (Version 3)
Quarter: 2025Q1

REPORT INFORMATION
  Report Type: Spontaneous
  Country: US (occurrence: US)
  Receive Date: 20201105
  Receipt Date: 20250128
  Transmission Date: 20250409
  Serious: Yes (Death, Other)
  Sender: PURDUE
  Company Number: US-PURDUE-USA-2020-0160323

PATIENT
  Age: 59 Year
  Sex: Male
  Weight: 114.29 kg

DRUGS (7)
  1. OXYCONTIN [Suspect]
     Active Substance: OXYCODONE HYDROCHLORIDE
     Indication: Shoulder operation
     Route: 048
  2. HYDROCODONE BITARTRATE AND ACETAMINOPHEN [Suspect]
     Active Substance: ACETAMINOPHEN\HYDROCODONE BITARTRATE
     Indication: Product used for unknown indication
     Route: 048
  3. OXYCODONE HYDROCHLORIDE [Suspect]
     Active Substance: OXYCODONE HYDROCHLORIDE
     Indication: Shoulder operation
     Route: 048
  4. ROXICODONE [Suspect]
     Active Substance: OXYCODONE HYDROCHLORIDE
     Indication: Shoulder operation
     Dosage: 30 MG, DAILY
     Route: 048
  5. ROXICODONE [Suspect]
     Active Substance: OXYCODONE HYDROCHLORIDE
     Route: 048
  6. VICODIN [Suspect]
     Active Substance: ACETAMINOPHEN\HYDROCODONE BITARTRATE
     Indication: Shoulder operation
     Route: 065
  7. ACETAMINOPHEN\OXYCODONE HYDROCHLORIDE\OXYCODONE TEREPHTHALATE [Suspect]
     Active Substance: ACETAMINOPHEN\OXYCODONE HYDROCHLORIDE\OXYCODONE TEREPHTHALATE
     Indication: Shoulder operation
     Route: 065

REACTIONS (16)
  - Completed suicide [Fatal]
  - Drug dependence [Unknown]
  - Defaecation disorder [Unknown]
  - Urinary incontinence [Unknown]
  - Derealisation [Unknown]
  - Abnormal behaviour [Unknown]
  - Agitation [Unknown]
  - Irritability [Unknown]
  - Hyperhidrosis [Unknown]
  - Hallucination [Unknown]
  - Insomnia [Unknown]
  - Depression [Unknown]
  - Constipation [Unknown]
  - Anxiety [Unknown]
  - Vomiting [Unknown]
  - Drug withdrawal syndrome [Unknown]

NARRATIVE: CASE EVENT DATE: 20170710
